FAERS Safety Report 15736400 (Version 7)
Quarter: 2019Q3

REPORT INFORMATION
  Report Type: Report from Study
  Country: US (occurrence: US)
  Receive Date: 20181218
  Receipt Date: 20190917
  Transmission Date: 20191004
  Serious: Yes (Hospitalization, Other)
  Sender: FDA-Public Use
  Company Number: US-EISAI MEDICAL RESEARCH-EC-2018-048052

PATIENT
  Age: 69 Year
  Sex: Female
  Weight: 52.2 kg

DRUGS (8)
  1. METOPROLOL SUCCINATE. [Concomitant]
     Active Substance: METOPROLOL SUCCINATE
  2. LENVIMA [Suspect]
     Active Substance: LENVATINIB
     Dosage: 14 MG, 5 DAYS ON, 2 DAY OFF
     Route: 048
     Dates: start: 201906, end: 201908
  3. ELIQUIS [Suspect]
     Active Substance: APIXABAN
     Indication: THROMBOSIS
     Dosage: UNKNOWN DOSE AND FREQUENCY
     Route: 048
     Dates: start: 201906, end: 201908
  4. SYNTHROID [Concomitant]
     Active Substance: LEVOTHYROXINE SODIUM
  5. LENVIMA [Suspect]
     Active Substance: LENVATINIB
     Dosage: 14 MG, 5 DAYS ON, 2 DAY OFF
     Route: 048
     Dates: start: 201903, end: 201906
  6. LENVIMA [Suspect]
     Active Substance: LENVATINIB
     Route: 048
     Dates: end: 201902
  7. LENVIMA [Suspect]
     Active Substance: LENVATINIB
     Indication: THYROID CANCER
     Route: 048
     Dates: start: 20181108, end: 20181128
  8. NORVASC [Concomitant]
     Active Substance: AMLODIPINE BESYLATE

REACTIONS (19)
  - Blood pressure increased [Recovering/Resolving]
  - Stomatitis [Not Recovered/Not Resolved]
  - Thrombosis [Unknown]
  - Vaginal haemorrhage [Recovered/Resolved]
  - Dry mouth [Not Recovered/Not Resolved]
  - Diarrhoea [Unknown]
  - Gastritis [Unknown]
  - Cerebrovascular accident [Unknown]
  - Fatigue [Unknown]
  - Urinary tract infection [Unknown]
  - Productive cough [Not Recovered/Not Resolved]
  - Oesophageal pain [Not Recovered/Not Resolved]
  - Hypophagia [Not Recovered/Not Resolved]
  - Cough [Not Recovered/Not Resolved]
  - Oral pain [Not Recovered/Not Resolved]
  - Glossodynia [Not Recovered/Not Resolved]
  - Weight decreased [Unknown]
  - Oedema peripheral [Unknown]
  - Dehydration [Not Recovered/Not Resolved]

NARRATIVE: CASE EVENT DATE: 201811
